FAERS Safety Report 4704585-7 (Version None)
Quarter: 2005Q2

REPORT INFORMATION
  Report Type: 
  Country: None (occurrence: None)
  Receive Date: 20050629
  Receipt Date: 20050616
  Transmission Date: 20051028
  Serious: Yes (Hospitalization)
  Sender: FDA-Public Use
  Company Number: 2005081724

PATIENT
  Age: 63 Year
  Sex: Male

DRUGS (3)
  1. GABAPENTIN [Suspect]
     Indication: NEUROPATHIC PAIN
     Dosage: 1200 MG (3 IN 1 D), ORAL
     Route: 048
     Dates: start: 20050401, end: 20050501
  2. DOXAZOSIN                         (DOXAZOSIN) [Concomitant]
  3. ANTIHYPERTENSIVES                           (ANTIHYPERTENSIVES) [Concomitant]

REACTIONS (14)
  - ABDOMINAL PAIN UPPER [None]
  - ANOREXIA [None]
  - BACK PAIN [None]
  - CONDITION AGGRAVATED [None]
  - CONSTIPATION [None]
  - DYSPHONIA [None]
  - HEADACHE [None]
  - MUSCULAR WEAKNESS [None]
  - OSTEOCHONDROSIS [None]
  - PRODUCTIVE COUGH [None]
  - PROTEIN URINE PRESENT [None]
  - PYREXIA [None]
  - RED BLOOD CELLS URINE POSITIVE [None]
  - URINE ANALYSIS ABNORMAL [None]
